FAERS Safety Report 21225363 (Version 1)
Quarter: 2022Q3

REPORT INFORMATION
  Report Type: Spontaneous
  Country: FR (occurrence: FR)
  Receive Date: 20220817
  Receipt Date: 20220817
  Transmission Date: 20221026
  Serious: Yes (Hospitalization)
  Sender: FDA-Public Use
  Company Number: FR-SUN PHARMACEUTICAL INDUSTRIES LTD-2022RR-348896

PATIENT
  Age: 33 Year
  Sex: Female

DRUGS (3)
  1. GANIRELIX ACETATE [Suspect]
     Active Substance: GANIRELIX ACETATE
     Indication: In vitro fertilisation
     Dosage: 1 DOSAGE FORM, DAILY
     Route: 058
     Dates: start: 20220608, end: 20220613
  2. CHORIOGONADOTROPIN ALFA [Suspect]
     Active Substance: CHORIOGONADOTROPIN ALFA
     Indication: In vitro fertilisation
     Dosage: 1 DOSAGE FORM, IN TOTAL
     Route: 058
     Dates: start: 20220614
  3. FOLLITROPIN ALFA [Suspect]
     Active Substance: FOLLITROPIN ALFA
     Indication: In vitro fertilisation
     Dosage: 187.5 IU LES 2 DERNIERS JOURS
     Route: 058
     Dates: start: 20220602, end: 20220613

REACTIONS (3)
  - Ascites [Recovering/Resolving]
  - Dyspnoea [Recovering/Resolving]
  - Ovarian hyperstimulation syndrome [Recovering/Resolving]

NARRATIVE: CASE EVENT DATE: 20220622
